FAERS Safety Report 16740572 (Version 3)
Quarter: 2019Q4

REPORT INFORMATION
  Report Type: Spontaneous
  Country: US (occurrence: US)
  Receive Date: 20190826
  Receipt Date: 20191023
  Transmission Date: 20200122
  Serious: No
  Sender: FDA-Public Use
  Company Number: US-PFIZER INC-2019363225

PATIENT
  Age: 88 Year
  Sex: Female
  Weight: 56.69 kg

DRUGS (19)
  1. VITAMIN C [Concomitant]
     Active Substance: ASCORBIC ACID
     Dosage: 500 MG, DAILY
     Route: 048
  2. SYNTHROID [Concomitant]
     Active Substance: LEVOTHYROXINE SODIUM
     Dosage: 112 UG, DAILY
     Route: 048
  3. DELTASONE [Concomitant]
     Active Substance: PREDNISONE
     Dosage: 2.5 MG, DAILY
  4. ASPIRIN EC [Concomitant]
     Active Substance: ASPIRIN
     Dosage: 81 MG, DAILY
     Route: 048
  5. INSULIN GLARGINE [Concomitant]
     Active Substance: INSULIN GLARGINE
     Dosage: 0.07 ML, 1X/DAY (0.07 MLS (7 UNITS TOTAL) UNDER THE SKIN NIGHTLY)
     Route: 058
  6. KLOR-CON [Concomitant]
     Active Substance: POTASSIUM CHLORIDE
     Dosage: 10 MEQ, DAILY
     Route: 048
  7. DILT-XR [Concomitant]
     Active Substance: DILTIAZEM
     Dosage: 120 MG, DAILY
     Route: 048
  8. NORCO [Concomitant]
     Active Substance: ACETAMINOPHEN\HYDROCODONE BITARTRATE
     Indication: PAIN
     Dosage: 1 DF, AS NEEDED ((TAKE 1 TABLET BY MOUTH EVERY 6 (SIX) HOURS)/[HYDROCODONE:5 MG;ACETAMINOPHEN:325 MG
     Route: 048
  9. HYZAAR [Concomitant]
     Active Substance: HYDROCHLOROTHIAZIDE\LOSARTAN POTASSIUM
     Dosage: 1 DF, DAILY (100MG LOSARTAN -12.5 MG HYDROCHLOROTHIAZIDE PER TABLET)
     Route: 048
  10. MILK THISTLE [Concomitant]
     Active Substance: DIETARY SUPPLEMENT\HERBALS\MILK THISTLE
     Indication: ENZYME SUPPLEMENTATION
     Dosage: 2 DF, 2X/DAY
  11. OSCAL D [Concomitant]
     Active Substance: CALCIUM CARBONATE\CHOLECALCIFEROL
     Dosage: 200 IU, 2X/DAY (WITH MEAL)
     Route: 048
  12. FLONASE [Concomitant]
     Active Substance: FLUTICASONE PROPIONATE
     Dosage: UNK, DAILY (2 SPRAYS BY EACH NARE ROUTE DAILY)/ (50 MCG/ACTUATION)
     Route: 045
  13. XELJANZ [Suspect]
     Active Substance: TOFACITINIB CITRATE
     Indication: RHEUMATOID ARTHRITIS
     Dosage: 5 MG, 2X/DAY
     Route: 048
  14. NITROSTAT [Concomitant]
     Active Substance: NITROGLYCERIN
     Indication: CHEST PAIN
     Dosage: 0.4 MG, AS NEEDED (1 TABLET (0.4MG TOTAL) UNDER THE TONGUE EVERY 5 (FIVE) MINUTES AS NEEDED)
     Route: 060
  15. FOLVITE [FOLIC ACID] [Concomitant]
     Dosage: 800 UG, DAILY
     Route: 048
  16. HYDROCORTISONE. [Concomitant]
     Active Substance: HYDROCORTISONE
     Dosage: UNK, AS NEEDED (APPLY TO THE AFFECTED AREAS ON THE FACE TWICE DAILY AS NEEDED)
  17. LEVOTHROID [Concomitant]
     Active Substance: LEVOTHYROXINE SODIUM
     Dosage: 112 UG, DAILY
     Route: 048
  18. DESYREL [Concomitant]
     Active Substance: TRAZODONE HYDROCHLORIDE
     Dosage: 50 MG, UNK
  19. VITAMIN B12 [Concomitant]
     Active Substance: CYANOCOBALAMIN
     Dosage: 1000 UG, DAILY
     Route: 048

REACTIONS (1)
  - Liver disorder [Unknown]

NARRATIVE: CASE EVENT DATE: 20190306
